FAERS Safety Report 17246812 (Version 3)
Quarter: 2020Q4

REPORT INFORMATION
  Report Type: Spontaneous
  Country: US (occurrence: US)
  Receive Date: 20200108
  Receipt Date: 20201119
  Transmission Date: 20210113
  Serious: No
  Sender: FDA-Public Use
  Company Number: US-PFIZER INC-2017445791

PATIENT
  Age: 71 Year
  Sex: Male
  Weight: 77.55 kg

DRUGS (3)
  1. DILANTIN [Suspect]
     Active Substance: PHENYTOIN
     Dosage: 400 MG, 2X/DAY
     Route: 048
     Dates: start: 20191014
  2. DILANTIN [Suspect]
     Active Substance: PHENYTOIN
     Dosage: 400 MG, 2X/DAY (TAKE 4 CAPSULE TWICE DAILY)
     Route: 048
  3. DILANTIN [Suspect]
     Active Substance: PHENYTOIN
     Indication: SEIZURE
     Dosage: 700 MG, DAILY (TAKE 4 CAPSULES IN THE MORNING BY AND 3 IN THE EVENING BY MOUTH)
     Route: 048
     Dates: start: 201804

REACTIONS (3)
  - Drug level decreased [Unknown]
  - Off label use [Unknown]
  - Prescribed overdose [Unknown]

NARRATIVE: CASE EVENT DATE: 201804
